FAERS Safety Report 8420992-3 (Version None)
Quarter: 2012Q2

REPORT INFORMATION
  Report Type: 
  Country: None (occurrence: None)
  Receive Date: 20120531
  Receipt Date: 20120516
  Transmission Date: 20120825
  Serious: Yes (Hospitalization, Other)
  Sender: FDA-Public Use
  Company Number: EU-2012-10094

PATIENT

DRUGS (3)
  1. DIURETICS [Concomitant]
  2. SAMSCA [Suspect]
     Indication: HYPONATRAEMIA
     Dosage: 7.5 MG MILLIGRAM(S), BID, ORAL, 30 MG MILLIGRAM(S), BID, ORAL,
30 MG MILLI
     Route: 048
     Dates: start: 20120301
  3. SAMSCA [Suspect]
     Indication: HYPONATRAEMIA
     Dosage: 7.5 MG MILLIGRAM(S), BID, ORAL, 30 MG MILLIGRAM(S), BID, ORAL,
30 MG MILLI
     Route: 048
     Dates: start: 20120412, end: 20120508

REACTIONS (6)
  - HYPONATRAEMIA [None]
  - WRONG TECHNIQUE IN DRUG USAGE PROCESS [None]
  - CARDIAC FAILURE [None]
  - ENDOCARDITIS [None]
  - OFF LABEL USE [None]
  - MEDICAL DEVICE COMPLICATION [None]
